FAERS Safety Report 16079707 (Version 5)
Quarter: 2020Q2

REPORT INFORMATION
  Report Type: Spontaneous
  Country: FR (occurrence: FR)
  Receive Date: 20190315
  Receipt Date: 20200428
  Transmission Date: 20200713
  Serious: No
  Sender: FDA-Public Use
  Company Number: FR-GILEAD-2019-0396387

PATIENT
  Age: 28 Year
  Sex: Male

DRUGS (1)
  1. ODEFSEY [Suspect]
     Active Substance: EMTRICITABINE\RILPIVIRINE HYDROCHLORIDE\TENOFOVIR ALAFENAMIDE FUMARATE
     Indication: HIV INFECTION
     Dosage: UNK
     Route: 065
     Dates: start: 20190115, end: 20190206

REACTIONS (2)
  - Viral load increased [Unknown]
  - Genotype drug resistance test positive [Unknown]

NARRATIVE: CASE EVENT DATE: 2019
